FAERS Safety Report 18831170 (Version 1)
Quarter: 2021Q1

REPORT INFORMATION
  Report Type: Spontaneous
  Country: IN (occurrence: IN)
  Receive Date: 20210203
  Receipt Date: 20210203
  Transmission Date: 20210419
  Serious: Yes (Other)
  Sender: FDA-Public Use
  Company Number: IN-LUPIN PHARMACEUTICALS INC.-2020-07186

PATIENT

DRUGS (1)
  1. TELISTA AM TAB UNCOATED [Suspect]
     Active Substance: AMLODIPINE\TELMISARTAN
     Indication: HYPERTENSION
     Dosage: 1 DOSAGE FORM, QD
     Route: 065

REACTIONS (1)
  - Blood pressure increased [Unknown]
